FAERS Safety Report 8195543-1 (Version None)
Quarter: 2012Q1

REPORT INFORMATION
  Report Type: 
  Country: None (occurrence: None)
  Receive Date: 20120308
  Receipt Date: 20120306
  Transmission Date: 20120608
  Serious: Yes (Death)
  Sender: FDA-Public Use
  Company Number: PHHY2012BR019691

PATIENT

DRUGS (2)
  1. VOLTAREN [Suspect]
     Indication: INJURY
     Dosage: 50 MG, EVERY 8 HOURS
     Route: 048
  2. VOLTAREN [Suspect]
     Dosage: 75/3 MG/ML
     Route: 030

REACTIONS (2)
  - INCORRECT DOSE ADMINISTERED [None]
  - DEATH [None]
